FAERS Safety Report 10406229 (Version 1)
Quarter: 2014Q3

REPORT INFORMATION
  Report Type: Spontaneous
  Country: US (occurrence: US)
  Receive Date: 20140825
  Receipt Date: 20140825
  Transmission Date: 20150326
  Serious: No
  Sender: FDA-Public Use
  Company Number: US-009507513-1408USA013796

PATIENT
  Sex: Female

DRUGS (1)
  1. NEXPLANON [Suspect]
     Active Substance: ETONOGESTREL
     Dosage: IMPLANT 68 MG, FREQUENCY UNKNOWN
     Route: 059
     Dates: start: 20121001, end: 20140813

REACTIONS (2)
  - No adverse event [Unknown]
  - Device kink [Recovered/Resolved]
